FAERS Safety Report 16739837 (Version 1)
Quarter: 2019Q3

REPORT INFORMATION
  Report Type: Spontaneous
  Country: US (occurrence: US)
  Receive Date: 20190826
  Receipt Date: 20190826
  Transmission Date: 20191005
  Serious: No
  Sender: FDA-Public Use
  Company Number: US-MYLANLABS-2019M1075048

PATIENT
  Sex: Female
  Weight: 126 kg

DRUGS (2)
  1. TORASEMIDE [Suspect]
     Active Substance: TORSEMIDE
     Indication: PRODUCT USED FOR UNKNOWN INDICATION
     Dosage: UNK
  2. ORENITRAM [Suspect]
     Active Substance: TREPROSTINIL
     Indication: PULMONARY ARTERIAL HYPERTENSION
     Dosage: 7.5 MILLIGRAM, TID
     Route: 048
     Dates: start: 20190522

REACTIONS (8)
  - Fluid overload [Unknown]
  - Hypotension [Unknown]
  - Peripheral swelling [Unknown]
  - Sleep apnoea syndrome [Unknown]
  - Abdominal discomfort [Unknown]
  - Anxiety [Unknown]
  - Palpitations [Unknown]
  - Presyncope [Unknown]
